FAERS Safety Report 6133081-8 (Version None)
Quarter: 2009Q1

REPORT INFORMATION
  Report Type: 
  Country: None (occurrence: None)
  Receive Date: 20090326
  Receipt Date: 20090318
  Transmission Date: 20090719
  Serious: Yes (Other)
  Sender: FDA-Public Use
  Company Number: US-BIOGENIDEC-2009BI008906

PATIENT
  Age: 21 Year
  Sex: Female

DRUGS (3)
  1. AVONEX [Suspect]
     Indication: DRUG EXPOSURE DURING PREGNANCY
     Route: 030
     Dates: start: 20080201, end: 20080801
  2. AVONEX [Suspect]
     Route: 030
     Dates: start: 20080901, end: 20081101
  3. AVONEX [Suspect]
     Route: 030
     Dates: start: 20090101

REACTIONS (2)
  - HYPERTENSION [None]
  - PRE-ECLAMPSIA [None]
